FAERS Safety Report 8225526-4 (Version None)
Quarter: 2012Q1

REPORT INFORMATION
  Report Type: 
  Country: None (occurrence: None)
  Receive Date: 20120321
  Receipt Date: 20120312
  Transmission Date: 20120608
  Serious: Yes (Other)
  Sender: FDA-Public Use
  Company Number: US-PURDUE-USA-2012-0083661

PATIENT
  Sex: Male

DRUGS (1)
  1. OXYCODONE HCL [Suspect]
     Indication: PRODUCT USED FOR UNKNOWN INDICATION
     Dosage: 5 UNK, UNK

REACTIONS (7)
  - PRODUCT QUALITY ISSUE [None]
  - ASTHMA [None]
  - MASS [None]
  - RASH [None]
  - PRURITUS [None]
  - HEART RATE DECREASED [None]
  - DYSPNOEA [None]
